FAERS Safety Report 8925289 (Version 7)
Quarter: 2013Q1

REPORT INFORMATION
  Report Type: Spontaneous
  Country: GB (occurrence: GB)
  Receive Date: 20121126
  Receipt Date: 20130108
  Transmission Date: 20140127
  Serious: Yes (Other)
  Sender: FDA-Public Use
  Company Number: GB-PFIZER INC-2012290515

PATIENT
  Age: 70 Year
  Sex: Female
  Weight: 72.2 kg

DRUGS (21)
  1. IBUPROFEN [Suspect]
     Indication: PATENT DUCTUS ARTERIOSUS
     Dosage: 400MG 3X/DAY
  2. IBUPROFEN [Suspect]
     Indication: PERICARDITIS
  3. IBUPROFEN [Suspect]
     Indication: DYSMENORRHOEA
  4. IBUPROFEN [Suspect]
     Indication: PAIN
  5. IBUPROFEN [Suspect]
     Indication: PYREXIA
  6. IBUPROFEN [Suspect]
     Indication: RHEUMATOID ARTHRITIS
  7. LANSOPRAZOLE [Suspect]
     Indication: GASTRINOMA
     Dosage: 30 MG, UNK
  8. LANSOPRAZOLE [Suspect]
     Indication: GASTROOESOPHAGEAL REFLUX DISEASE
  9. LANSOPRAZOLE [Suspect]
     Indication: ULCER
  10. LANSOPRAZOLE [Suspect]
     Indication: GASTRIC ULCER
  11. LANSOPRAZOLE [Suspect]
     Indication: DUODENAL ULCER
  12. ATORVASTATIN [Suspect]
     Indication: CARDIOVASCULAR EVENT PROPHYLAXIS
     Dosage: 80MG 1X/DAY
  13. ATORVASTATIN [Suspect]
     Indication: DYSLIPIDAEMIA
  14. METFORMIN HCL [Suspect]
     Indication: TYPE 2 DIABETES MELLITUS
     Dosage: 500MG 2X/DAY
  15. LOPERAMIDE [Suspect]
     Indication: DIARRHOEA
     Dosage: 2MG, AS NEEDED
  16. LOPERAMIDE [Suspect]
     Indication: GASTRINOMA
  17. LOPERAMIDE [Suspect]
     Indication: FUNCTIONAL GASTROINTESTINAL DISORDER
  18. CARBAMAZEPINE [Suspect]
     Indication: NEURALGIA
     Dosage: 100 MG, 4X/DAY
  19. CARBAMAZEPINE [Suspect]
     Indication: CONVULSION
  20. GLYCERYL TRINITRATE [Suspect]
     Indication: ISCHAEMIC HEART DISEASE PROPHYLAXIS
     Dosage: 400 UG, UNK
     Route: 060
  21. ISOSORBIDE MONONITRATE [Suspect]
     Indication: ISCHAEMIC HEART DISEASE PROPHYLAXIS
     Dosage: 1DF, 1X/DAY

REACTIONS (1)
  - Colitis microscopic [Not Recovered/Not Resolved]
